FAERS Safety Report 19926437 (Version 1)
Quarter: 2021Q4

REPORT INFORMATION
  Report Type: Report from Study
  Country: CA (occurrence: CA)
  Receive Date: 20211006
  Receipt Date: 20211006
  Transmission Date: 20220303
  Serious: Yes (Other)
  Sender: FDA-Public Use
  Company Number: CA-GILEAD-2021-0546779

PATIENT
  Age: 54 Year
  Sex: Male

DRUGS (1)
  1. SOFOSBUVIR\VELPATASVIR [Suspect]
     Active Substance: SOFOSBUVIR\VELPATASVIR
     Indication: Chronic hepatitis C
     Dosage: UNK
     Route: 065
     Dates: start: 20210417, end: 20210928

REACTIONS (10)
  - Melaena [Recovered/Resolved]
  - Weight increased [Unknown]
  - Abdominal distension [Unknown]
  - Vasodilatation [Unknown]
  - Dyspnoea [Unknown]
  - Fatigue [Unknown]
  - Breath sounds abnormal [Unknown]
  - Somnolence [Unknown]
  - Medication error [Unknown]
  - Circumstance or information capable of leading to medication error [Not Recovered/Not Resolved]
